FAERS Safety Report 24159216 (Version 1)
Quarter: 2024Q3

REPORT INFORMATION
  Report Type: Spontaneous
  Country: FR (occurrence: FR)
  Receive Date: 20240731
  Receipt Date: 20240731
  Transmission Date: 20241016
  Serious: Yes (Hospitalization)
  Sender: MYLAN
  Company Number: None

PATIENT
  Age: 55 Year
  Sex: Male
  Weight: 69 kg

DRUGS (4)
  1. CARBAMAZEPINE [Suspect]
     Active Substance: CARBAMAZEPINE
     Indication: Product used for unknown indication
     Dosage: 400 MILLIGRAM, QD
     Route: 048
     Dates: start: 202309
  2. AMOXICILLIN [Suspect]
     Active Substance: AMOXICILLIN
     Indication: Pharyngitis
     Dosage: NR
     Route: 048
     Dates: start: 20240119, end: 20240120
  3. GABAPENTIN [Suspect]
     Active Substance: GABAPENTIN
     Indication: Pain
     Dosage: 1800 MILLIGRAM
     Route: 048
     Dates: start: 202308
  4. PRISTINAMYCIN [Suspect]
     Active Substance: PRISTINAMYCIN
     Indication: Ear infection
     Dosage: NR
     Route: 048
     Dates: start: 20240302

REACTIONS (1)
  - Toxic skin eruption [Recovered/Resolved]

NARRATIVE: CASE EVENT DATE: 20240119
